FAERS Safety Report 7424432-2 (Version None)
Quarter: 2011Q2

REPORT INFORMATION
  Report Type: 
  Country: None (occurrence: None)
  Receive Date: 20110419
  Receipt Date: 20110210
  Transmission Date: 20111010
  Serious: No
  Sender: FDA-Public Use
  Company Number: US-ABBOTT-11P-163-0705059-00

PATIENT
  Sex: Male

DRUGS (10)
  1. HYDROXYZINE HCL [Concomitant]
     Indication: HYPERTENSION
  2. NEXIUM [Concomitant]
     Indication: GASTROOESOPHAGEAL REFLUX DISEASE
  3. CLONIDINE [Concomitant]
     Indication: HYPERTENSION
  4. ZEMPLAR [Suspect]
     Indication: RENAL FAILURE
     Route: 042
  5. AMBIEN [Concomitant]
     Indication: INSOMNIA
  6. CALCIUM GLUCONATE [Concomitant]
     Indication: RENAL FAILURE
  7. MINOXIDIL [Concomitant]
     Indication: HYPERTENSION
  8. RENAGEL [Concomitant]
     Indication: RENAL FAILURE
  9. CALCIUM CARBONATE [Concomitant]
     Indication: RENAL FAILURE
  10. DIOVAN [Concomitant]
     Indication: HYPERTENSION

REACTIONS (2)
  - HYPERSENSITIVITY [None]
  - OEDEMA PERIPHERAL [None]
